FAERS Safety Report 10588652 (Version 2)
Quarter: 2014Q4

REPORT INFORMATION
  Report Type: Report from Study
  Country: US (occurrence: US)
  Receive Date: 20141117
  Receipt Date: 20141117
  Transmission Date: 20150529
  Serious: Yes (Hospitalization)
  Sender: FDA-Public Use
  Company Number: US-ACTELION-A-NJ2014-106405

PATIENT
  Age: 52 Year
  Sex: Female

DRUGS (1)
  1. TRACLEER [Suspect]
     Active Substance: BOSENTAN\BOSENTAN MONOHYDRATE
     Indication: PULMONARY ARTERIAL HYPERTENSION
     Dosage: UNK
     Route: 048
     Dates: end: 20140814

REACTIONS (7)
  - Oxygen saturation decreased [Recovered/Resolved]
  - Coronary artery occlusion [Recovered/Resolved]
  - Stent placement [Recovered/Resolved]
  - Diastolic dysfunction [Unknown]
  - Condition aggravated [Unknown]
  - Chest pain [Recovered/Resolved]
  - Cyanosis [Recovered/Resolved]

NARRATIVE: CASE EVENT DATE: 20140902
